FAERS Safety Report 5860152-3 (Version None)
Quarter: 2008Q3

REPORT INFORMATION
  Report Type: 
  Country: None (occurrence: None)
  Receive Date: 20080827
  Receipt Date: 20080818
  Transmission Date: 20090109
  Serious: Yes (Other)
  Sender: FDA-Public Use
  Company Number: US-PFIZER INC-2008069125

PATIENT
  Sex: Female

DRUGS (5)
  1. NORVASC [Suspect]
     Indication: HYPERTENSION
     Route: 048
  2. FOSINOPRIL SODIUM [Concomitant]
  3. LISINOPRIL [Concomitant]
  4. AMLODIPINE [Concomitant]
  5. XALATAN [Concomitant]

REACTIONS (5)
  - FATIGUE [None]
  - GAIT DISTURBANCE [None]
  - MALAISE [None]
  - MUSCULAR WEAKNESS [None]
  - PAIN IN EXTREMITY [None]
